FAERS Safety Report 16556801 (Version 1)
Quarter: 2019Q3

REPORT INFORMATION
  Report Type: Report from Study
  Country: US (occurrence: US)
  Receive Date: 20190711
  Receipt Date: 20190711
  Transmission Date: 20191004
  Serious: Yes (Hospitalization, Other)
  Sender: FDA-Public Use
  Company Number: US-JNJFOC-20180239991

PATIENT
  Age: 68 Year
  Sex: Male

DRUGS (33)
  1. IMBRUVICA [Suspect]
     Active Substance: IBRUTINIB
     Indication: CHRONIC LYMPHOCYTIC LEUKAEMIA
     Dosage: 140 MG, QD
     Route: 048
     Dates: start: 20180401
  2. RAMIPRIL. [Concomitant]
     Active Substance: RAMIPRIL
  3. BYSTOLIC [Concomitant]
     Active Substance: NEBIVOLOL HYDROCHLORIDE
  4. ASPIR 81 [Concomitant]
     Active Substance: ASPIRIN
  5. IMBRUVICA [Suspect]
     Active Substance: IBRUTINIB
     Dosage: 280 MG, QOD
     Route: 048
     Dates: start: 20180401
  6. PRAVASTATIN. [Concomitant]
     Active Substance: PRAVASTATIN
  7. BABY ASPIRIN [Concomitant]
     Active Substance: ASPIRIN
  8. VITAMIN C [Concomitant]
     Active Substance: ASCORBIC ACID
  9. VITAMIN B [Concomitant]
     Active Substance: VITAMIN B
  10. IMBRUVICA [Suspect]
     Active Substance: IBRUTINIB
     Dosage: 140 MG, QD
     Route: 048
     Dates: start: 20180501
  11. VITAMIN D NOS [Concomitant]
     Active Substance: VITAMIN D NOS
  12. GLUCOSAMINE [Concomitant]
     Active Substance: GLUCOSAMINE
  13. HCTZ [Concomitant]
     Active Substance: HYDROCHLOROTHIAZIDE
  14. CENTRUM SILVER [Concomitant]
     Active Substance: MINERALS\VITAMINS
  15. IMBRUVICA [Suspect]
     Active Substance: IBRUTINIB
     Dosage: 140 MG, QD
     Route: 048
     Dates: start: 20180126, end: 20180426
  16. IMBRUVICA [Suspect]
     Active Substance: IBRUTINIB
     Dosage: 280 MG, QD
     Route: 048
     Dates: start: 20180404, end: 20180508
  17. IMBRUVICA [Suspect]
     Active Substance: IBRUTINIB
     Dosage: 280 MG, QD
     Route: 048
     Dates: start: 20180428, end: 20180509
  18. INDOCIN [Concomitant]
     Active Substance: INDOMETHACIN
  19. CHLORPROPAMIDE. [Concomitant]
     Active Substance: CHLORPROPAMIDE
  20. IMBRUVICA [Suspect]
     Active Substance: IBRUTINIB
     Route: 048
     Dates: start: 20180816
  21. METFORMIN [Concomitant]
     Active Substance: METFORMIN HYDROCHLORIDE
  22. VITAMIN B12 [Concomitant]
     Active Substance: CYANOCOBALAMIN
     Dosage: CHEWABLE
  23. METOPROLOL. [Concomitant]
     Active Substance: METOPROLOL
  24. IMBRUVICA [Suspect]
     Active Substance: IBRUTINIB
     Dosage: 140 MG, QD
     Route: 048
     Dates: start: 20180427, end: 20180815
  25. IMBRUVICA [Suspect]
     Active Substance: IBRUTINIB
     Dosage: 280 MG, QOD
     Route: 048
     Dates: start: 20180509
  26. IRON [Concomitant]
     Active Substance: IRON
  27. GLUCOSAMINE AND CHONDROITIN [Concomitant]
     Active Substance: CHONDROITIN SULFATE (BOVINE)\GLUCOSAMINE HYDROCHLORIDE
  28. LISINOPRIL. [Concomitant]
     Active Substance: LISINOPRIL
  29. IMBRUVICA [Suspect]
     Active Substance: IBRUTINIB
     Indication: CHRONIC LYMPHOCYTIC LEUKAEMIA
     Dosage: 420 MG, QD
     Route: 048
     Dates: start: 20160126, end: 20180426
  30. IMBRUVICA [Suspect]
     Active Substance: IBRUTINIB
     Dosage: 140 MG, QD
     Route: 048
     Dates: start: 2018
  31. HYDROCHLOROTHIAZIDE. [Concomitant]
     Active Substance: HYDROCHLOROTHIAZIDE
  32. PANTOPRAZOLE [Concomitant]
     Active Substance: PANTOPRAZOLE
  33. PROTONIX [Concomitant]
     Active Substance: PANTOPRAZOLE SODIUM

REACTIONS (16)
  - Night sweats [Recovered/Resolved]
  - White blood cell count abnormal [Unknown]
  - Bone pain [Not Recovered/Not Resolved]
  - Platelet count abnormal [Recovering/Resolving]
  - Sinus congestion [Recovering/Resolving]
  - Arthralgia [Not Recovered/Not Resolved]
  - Hypotension [Unknown]
  - Nasopharyngitis [Recovering/Resolving]
  - Pharyngitis streptococcal [Unknown]
  - Hypertension [Recovering/Resolving]
  - White blood cell count increased [Recovering/Resolving]
  - Gout [Not Recovered/Not Resolved]
  - Red blood cell count abnormal [Recovering/Resolving]
  - Atrial fibrillation [Recovered/Resolved]
  - Petechiae [Not Recovered/Not Resolved]
  - Myalgia [Recovered/Resolved]

NARRATIVE: CASE EVENT DATE: 20180126
